FAERS Safety Report 16760040 (Version 2)
Quarter: 2019Q3

REPORT INFORMATION
  Report Type: Spontaneous
  Country: US (occurrence: US)
  Receive Date: 20190830
  Receipt Date: 20190909
  Transmission Date: 20191005
  Serious: No
  Sender: FDA-Public Use
  Company Number: US-PFIZER INC-2019359101

PATIENT
  Age: 67 Year
  Sex: Female
  Weight: 100 kg

DRUGS (1)
  1. LYRICA [Suspect]
     Active Substance: PREGABALIN
     Indication: NEUROPATHY PERIPHERAL
     Dosage: 50 MG, 3X/DAY [50MG CAPSULES BY MOUTH THREE TIMES DAILY]
     Route: 048
     Dates: start: 2014

REACTIONS (2)
  - Insomnia [Unknown]
  - Intentional dose omission [Unknown]
